FAERS Safety Report 21628467 (Version 1)
Quarter: 2022Q4

REPORT INFORMATION
  Report Type: Report from Study
  Country: DE (occurrence: DE)
  Receive Date: 20221122
  Receipt Date: 20221122
  Transmission Date: 20230113
  Serious: Yes (Life-Threatening, Hospitalization, Other)
  Sender: FDA-Public Use
  Company Number: DE-GLAXOSMITHKLINE-DE2022GSK171449

PATIENT

DRUGS (8)
  1. LAMOTRIGINE [Suspect]
     Active Substance: LAMOTRIGINE
     Indication: Disability
     Dosage: UNK
  2. LAMOTRIGINE [Suspect]
     Active Substance: LAMOTRIGINE
     Indication: Mental disorder
  3. TIAPRIDE [Suspect]
     Active Substance: TIAPRIDE
     Indication: Disability
     Dosage: UNK
  4. TIAPRIDE [Suspect]
     Active Substance: TIAPRIDE
     Indication: Mental disorder
  5. ZUCLOPENTHIXOL [Suspect]
     Active Substance: ZUCLOPENTHIXOL
     Indication: Disability
     Dosage: UNK
  6. ZUCLOPENTHIXOL [Suspect]
     Active Substance: ZUCLOPENTHIXOL
     Indication: Mental disorder
  7. MELPERONE [Suspect]
     Active Substance: MELPERONE
     Indication: Disability
     Dosage: UNK
  8. MELPERONE [Suspect]
     Active Substance: MELPERONE
     Indication: Mental disorder

REACTIONS (2)
  - Full blood count abnormal [Unknown]
  - Aplastic anaemia [Unknown]
